FAERS Safety Report 5665314-6 (Version None)
Quarter: 2008Q1

REPORT INFORMATION
  Report Type: 
  Country: None (occurrence: None)
  Receive Date: 20080314
  Receipt Date: 20080130
  Transmission Date: 20080703
  Serious: Yes (Hospitalization)
  Sender: FDA-Public Use
  Company Number: US-ABBOTT-07P-163-0421945-00

PATIENT
  Sex: Female
  Weight: 47.67 kg

DRUGS (6)
  1. HUMIRA [Suspect]
     Indication: RHEUMATOID ARTHRITIS
     Route: 058
     Dates: start: 20061001, end: 20070101
  2. HUMIRA [Suspect]
     Route: 058
     Dates: start: 20070201, end: 20070601
  3. HUMIRA [Suspect]
     Dates: end: 20080101
  4. METHOTREXATE [Suspect]
     Indication: DRUG USE FOR UNKNOWN INDICATION
  5. STEROID [Suspect]
     Indication: DRUG USE FOR UNKNOWN INDICATION
     Route: 030
  6. PREDNISONE TAB [Suspect]
     Indication: ADRENAL INSUFFICIENCY
     Route: 048

REACTIONS (6)
  - ARTHRITIS INFECTIVE [None]
  - ERYTHEMA [None]
  - FEELING HOT [None]
  - PNEUMONIA [None]
  - PURULENT DISCHARGE [None]
  - SOFT TISSUE INFECTION [None]
